FAERS Safety Report 5131502-0 (Version None)
Quarter: 2006Q4

REPORT INFORMATION
  Report Type: 
  Country: None (occurrence: None)
  Receive Date: 20061020
  Receipt Date: 20061012
  Transmission Date: 20070319
  Serious: Yes (Death, Hospitalization)
  Sender: FDA-Public Use
  Company Number: CG-MERCK-0610USA09932

PATIENT
  Age: 24 Year
  Sex: Male

DRUGS (1)
  1. STROMECTOL [Suspect]
     Route: 048
     Dates: start: 20060907, end: 20060907

REACTIONS (5)
  - ASTHENIA [None]
  - CONJUNCTIVAL HAEMORRHAGE [None]
  - DEATH [None]
  - HEADACHE [None]
  - LOSS OF CONSCIOUSNESS [None]
